FAERS Safety Report 6032233-5 (Version None)
Quarter: 2009Q1

REPORT INFORMATION
  Report Type: 
  Country: None (occurrence: None)
  Receive Date: 20090108
  Receipt Date: 20081229
  Transmission Date: 20090719
  Serious: No
  Sender: FDA-Public Use
  Company Number: US-B.I. PHARMACEUTICALS,INC./RIDGEFIELD-2008-BP-19200BP

PATIENT
  Sex: Male

DRUGS (3)
  1. FLOMAX [Suspect]
     Dosage: .4MG
     Route: 048
     Dates: start: 20081209
  2. AMLODIPINE [Concomitant]
     Indication: HYPERTENSION
     Route: 048
  3. RADIATION THERAPY [Concomitant]
     Indication: OESOPHAGEAL CARCINOMA

REACTIONS (2)
  - EYE PAIN [None]
  - URINARY INCONTINENCE [None]
